FAERS Safety Report 5831562-5 (Version None)
Quarter: 2008Q3

REPORT INFORMATION
  Report Type: 
  Country: None (occurrence: None)
  Receive Date: 20080801
  Receipt Date: 20080718
  Transmission Date: 20090109
  Serious: Yes (Hospitalization)
  Sender: FDA-Public Use
  Company Number: SE-GENENTECH-265224

PATIENT

DRUGS (2)
  1. BEVACIZUMAB [Suspect]
     Indication: COLORECTAL CANCER METASTATIC
  2. ERLOTINIB [Suspect]
     Indication: COLORECTAL CANCER METASTATIC

REACTIONS (3)
  - DIARRHOEA [None]
  - FATIGUE [None]
  - PYREXIA [None]
